FAERS Safety Report 14040316 (Version 6)
Quarter: 2017Q4

REPORT INFORMATION
  Report Type: Report from Study
  Country: JP (occurrence: JP)
  Receive Date: 20171004
  Receipt Date: 20171222
  Transmission Date: 20180321
  Serious: Yes (Hospitalization)
  Sender: FDA-Public Use
  Company Number: JP-PFIZER INC-2017419749

PATIENT
  Age: 62 Year
  Sex: Male
  Weight: 86.1 kg

DRUGS (29)
  1. PEMBROLIZUMAB. [Suspect]
     Active Substance: PEMBROLIZUMAB
     Indication: RENAL CELL CARCINOMA
     Dosage: 200 MG, EVERY 3 WEEKS (INFUSION VOLUME 108 ML)
     Route: 042
     Dates: start: 20170518, end: 20170627
  2. PEMBROLIZUMAB. [Suspect]
     Active Substance: PEMBROLIZUMAB
     Dosage: 200 MG, EVERY 3 WEEKS
     Route: 042
     Dates: start: 20171107
  3. MOHRUS [Concomitant]
     Active Substance: KETOPROFEN
     Dosage: 40 MG, UNK
     Dates: start: 20170208
  4. BETNOVAL G [Concomitant]
     Dosage: 1 DF, UNK
     Dates: start: 20170607
  5. PREDONINE [Concomitant]
     Active Substance: PREDNISOLONE
     Dosage: 5 MG, UNK
     Dates: start: 20170831, end: 20171011
  6. LOXOMARIN [Concomitant]
     Active Substance: LOXOPROFEN
     Dosage: 60 MG, UNK
     Dates: start: 20170919, end: 20170921
  7. AXITINIB [Suspect]
     Active Substance: AXITINIB
     Indication: RENAL CELL CARCINOMA
     Dosage: 5 MG, 2X/DAY
     Route: 048
     Dates: start: 20170518, end: 20170712
  8. AXITINIB [Suspect]
     Active Substance: AXITINIB
     Dosage: 5 MG, 2X/DAY
     Route: 048
     Dates: start: 20170715, end: 20170715
  9. GLYCERIN. [Concomitant]
     Active Substance: GLYCERIN
     Dosage: 60 ML, UNK
     Dates: start: 20170802
  10. AXITINIB [Suspect]
     Active Substance: AXITINIB
     Dosage: 5 MG, QD
     Route: 048
     Dates: start: 20170713, end: 20170714
  11. AXITINIB [Suspect]
     Active Substance: AXITINIB
     Dosage: 5 MG, QD
     Route: 048
     Dates: start: 20170718, end: 20170718
  12. SENNOSIDES. [Concomitant]
     Active Substance: SENNOSIDES
     Dosage: 12 MG, UNK
     Dates: start: 20170731
  13. AXITINIB [Suspect]
     Active Substance: AXITINIB
     Dosage: 3 MG, 2X/DAY
     Route: 048
     Dates: start: 20170909, end: 20170921
  14. PEMBROLIZUMAB. [Suspect]
     Active Substance: PEMBROLIZUMAB
     Dosage: 200 MG, EVERY 3 WEEKS
     Route: 042
     Dates: start: 20170719, end: 20170719
  15. POVIDONE-IODINE. [Concomitant]
     Active Substance: POVIDONE-IODINE
     Dosage: 1 DF, UNK
     Dates: start: 20170727
  16. AXITINIB [Suspect]
     Active Substance: AXITINIB
     Dosage: 5 MG, 2X/DAY
     Route: 048
     Dates: start: 20170717, end: 20170717
  17. AXITINIB [Suspect]
     Active Substance: AXITINIB
     Dosage: 5 MG, 2X/DAY
     Route: 048
     Dates: start: 20170719, end: 20170725
  18. AXITINIB [Suspect]
     Active Substance: AXITINIB
     Dosage: 5 MG, 1X/DAY
     Route: 048
     Dates: start: 20170726, end: 20170726
  19. ADEFURONIC [Concomitant]
     Active Substance: DICLOFENAC SODIUM
     Dosage: 1 DF, UNK
     Dates: start: 20170607
  20. CEFCAPENE PIVOXIL HYDROCHLORIDE [Concomitant]
     Active Substance: CEFCAPENE PIVOXIL HYDROCHLORIDE
     Dosage: 100 MG, UNK
     Dates: start: 20170919, end: 20170921
  21. AXITINIB [Suspect]
     Active Substance: AXITINIB
     Dosage: 3 MG, QD
     Route: 048
     Dates: start: 20170922, end: 20170922
  22. RABEPRAZOLE SODIUM. [Concomitant]
     Active Substance: RABEPRAZOLE SODIUM
     Dosage: 10 MG, UNK
     Dates: start: 20170727
  23. URSODIOL. [Concomitant]
     Active Substance: URSODIOL
     Dosage: 300 MG, UNK
     Dates: start: 20170817
  24. AXITINIB [Suspect]
     Active Substance: AXITINIB
     Dosage: 5 MG, QD
     Route: 048
     Dates: start: 20170716, end: 20170716
  25. BESOFTEN [Concomitant]
     Active Substance: PENTOSAN POLYSULFATE SODIUM
     Dosage: 1 DF, UNK
     Dates: start: 20170518
  26. AZUNOL [Concomitant]
     Active Substance: SODIUM GUALENATE
     Dosage: 1 DF, UNK
     Dates: start: 20170518
  27. KETOPROFEN. [Concomitant]
     Active Substance: KETOPROFEN
     Dosage: 1 DF, UNK
     Route: 003
     Dates: start: 20170524
  28. HALIZON [Concomitant]
     Active Substance: AMPHOTERICIN B
     Dosage: 1 ML, UNK
     Dates: start: 20170727
  29. BAKTAR [Concomitant]
     Active Substance: SULFAMETHOXAZOLE\TRIMETHOPRIM
     Dosage: 1 DF, UNK
     Dates: start: 20170727

REACTIONS (1)
  - Malaise [Recovered/Resolved]

NARRATIVE: CASE EVENT DATE: 20170920
